FAERS Safety Report 6134007-3 (Version None)
Quarter: 2009Q1

REPORT INFORMATION
  Report Type: 
  Country: None (occurrence: None)
  Receive Date: 20090326
  Receipt Date: 20090319
  Transmission Date: 20090719
  Serious: Yes (Death)
  Sender: FDA-Public Use
  Company Number: US-AMGEN-US338003

PATIENT
  Sex: Female
  Weight: 41.3 kg

DRUGS (4)
  1. NPLATE [Suspect]
     Indication: IDIOPATHIC THROMBOCYTOPENIC PURPURA
     Route: 058
     Dates: start: 20081224, end: 20081224
  2. CORTICOSTEROID NOS [Concomitant]
     Route: 065
  3. IMMUNOGLOBULINS [Concomitant]
     Route: 065
  4. AZATHIOPRINE [Concomitant]
     Route: 065
     Dates: start: 20081107, end: 20081113

REACTIONS (1)
  - ENCEPHALOPATHY [None]
